FAERS Safety Report 17139505 (Version 1)
Quarter: 2019Q4

REPORT INFORMATION
  Report Type: Spontaneous
  Country: US (occurrence: US)
  Receive Date: 20191119
  Receipt Date: 20191119
  Transmission Date: 20200122
  Serious: Yes (Hospitalization)
  Sender: FDA-Public Use
  Company Number: None

PATIENT
  Age: 68 Year
  Sex: Male

DRUGS (1)
  1. DABIGATRAN [Suspect]
     Active Substance: DABIGATRAN
     Indication: ATRIAL FIBRILLATION
     Route: 048
     Dates: start: 20190605

REACTIONS (4)
  - Condition aggravated [None]
  - Haemoglobin decreased [None]
  - Colitis ischaemic [None]
  - Rectal haemorrhage [None]

NARRATIVE: CASE EVENT DATE: 20190605
